FAERS Safety Report 25632536 (Version 1)
Quarter: 2025Q3

REPORT INFORMATION
  Report Type: Spontaneous
  Country: US (occurrence: US)
  Receive Date: 20250801
  Receipt Date: 20250801
  Transmission Date: 20251021
  Serious: Yes (Other)
  Sender: GRIFOLS
  Company Number: US-IGSA-BIG0029455

PATIENT
  Age: 32 Year
  Sex: Female
  Weight: 90.703 kg

DRUGS (3)
  1. GAMUNEX-C [Suspect]
     Active Substance: HUMAN IMMUNOGLOBULIN G
     Indication: Chronic inflammatory demyelinating polyradiculoneuropathy
     Route: 042
     Dates: start: 20240608, end: 20240608
  2. GAMUNEX-C [Suspect]
     Active Substance: HUMAN IMMUNOGLOBULIN G
     Route: 042
     Dates: start: 20240609, end: 20240609
  3. GAMUNEX-C [Suspect]
     Active Substance: HUMAN IMMUNOGLOBULIN G
     Dosage: 180 GRAM, Q.4WK.
     Route: 042
     Dates: start: 20240601

REACTIONS (2)
  - Migraine [Unknown]
  - Vomiting [Unknown]

NARRATIVE: CASE EVENT DATE: 20240610
